FAERS Safety Report 4611203-5 (Version None)
Quarter: 2005Q1

REPORT INFORMATION
  Report Type: 
  Country: None (occurrence: None)
  Receive Date: 20050316
  Receipt Date: 20050316
  Transmission Date: 20050727
  Serious: No
  Sender: FDA-Public Use
  Company Number: None

PATIENT
  Age: 62 Year
  Sex: Male
  Weight: 83.9 kg

DRUGS (9)
  1. GEMCITABINE [Suspect]
  2. HYDROXYZINE HCL [Concomitant]
  3. TRIAMCINOLONE ACETONIDE [Concomitant]
  4. PROCHLORPERAZINE MALEATE [Concomitant]
  5. DEXAMETHASONE [Concomitant]
  6. IBUPROFEN [Concomitant]
  7. MEGESTROL ACETATE [Concomitant]
  8. SIMVASTATIN [Concomitant]
  9. ALBUTEROL [Concomitant]

REACTIONS (1)
  - RASH [None]
